FAERS Safety Report 4862749-6 (Version None)
Quarter: 2005Q4

REPORT INFORMATION
  Report Type: 
  Country: None (occurrence: None)
  Receive Date: 20051221
  Receipt Date: 20051219
  Transmission Date: 20060501
  Serious: Yes (Disabling, Other)
  Sender: FDA-Public Use
  Company Number: 2005AC01994

PATIENT
  Age: 72 Year
  Sex: Male
  Weight: 70 kg

DRUGS (2)
  1. MARCAINE [Suspect]
     Indication: SPINAL ANAESTHESIA
     Dosage: HYPERBARIC. PERFORMED AT L3-4 INTERSPACE.
     Route: 037
  2. BETADINE [Concomitant]
     Indication: INFECTION PROPHYLAXIS
     Dosage: APPLIED OVER LUMBAR  AREA PRIOR TO COMMECING SURGERY.

REACTIONS (7)
  - CAUDA EQUINA SYNDROME [None]
  - DIFFICULTY IN WALKING [None]
  - DRUG TOXICITY [None]
  - DYSAESTHESIA [None]
  - GAIT DISTURBANCE [None]
  - NEUROTOXICITY [None]
  - PAIN IN EXTREMITY [None]
